FAERS Safety Report 18715073 (Version 1)
Quarter: 2021Q1

REPORT INFORMATION
  Report Type: Other
  Country: DE (occurrence: DE)
  Receive Date: 20210107
  Receipt Date: 20210107
  Transmission Date: 20210419
  Serious: No
  Sender: FDA-Public Use
  Company Number: DE-LUPIN PHARMACEUTICALS INC.-2020-01500

PATIENT
  Age: 39 Year
  Sex: Female
  Weight: 97 kg

DRUGS (6)
  1. MIRTAZAPINE. [Suspect]
     Active Substance: MIRTAZAPINE
     Indication: PANIC ATTACK
     Dosage: 30 MILLIGRAM, QD (IN THE EVENING MIRTAZAPINE 30 MG)
     Route: 048
     Dates: start: 20190203, end: 20191211
  2. MIRTAZAPINE. [Suspect]
     Active Substance: MIRTAZAPINE
     Indication: OBSESSIVE THOUGHTS
  3. SERTRALINE [Suspect]
     Active Substance: SERTRALINE HYDROCHLORIDE
     Indication: PANIC ATTACK
  4. SERTRALINE [Suspect]
     Active Substance: SERTRALINE HYDROCHLORIDE
     Indication: ANXIETY
  5. MIRTAZAPINE. [Suspect]
     Active Substance: MIRTAZAPINE
     Indication: ANXIETY
  6. SERTRALINE [Suspect]
     Active Substance: SERTRALINE HYDROCHLORIDE
     Indication: OBSESSIVE THOUGHTS
     Dosage: 150 MILLIGRAM, QD (SERTRALINE 150 MG IN THE MORNING)
     Route: 048
     Dates: start: 20190203, end: 20191211

REACTIONS (3)
  - Fluid retention [Recovered/Resolved]
  - Weight increased [Recovered/Resolved]
  - Ocular discomfort [Recovered/Resolved]
